FAERS Safety Report 18986842 (Version 1)
Quarter: 2021Q1

REPORT INFORMATION
  Report Type: Spontaneous
  Country: CA (occurrence: CA)
  Receive Date: 20210309
  Receipt Date: 20210309
  Transmission Date: 20210420
  Serious: Yes (Death, Other)
  Sender: FDA-Public Use
  Company Number: CA-ASTRAZENECA-2021A099034

PATIENT
  Age: 767 Month
  Sex: Male
  Weight: 60 kg

DRUGS (1)
  1. IMFINZI [Suspect]
     Active Substance: DURVALUMAB
     Indication: LUNG SQUAMOUS CELL CARCINOMA STAGE III
     Dosage: 10.0MG/KG UNKNOWN
     Route: 042
     Dates: start: 20190822, end: 20190919

REACTIONS (5)
  - Immune-mediated enterocolitis [Unknown]
  - Pneumonia [Unknown]
  - Pneumonitis [Fatal]
  - Pulmonary embolism [Unknown]
  - Pleural effusion [Unknown]

NARRATIVE: CASE EVENT DATE: 201909
